FAERS Safety Report 7105800-5 (Version None)
Quarter: 2010Q4

REPORT INFORMATION
  Report Type: 
  Country: None (occurrence: None)
  Receive Date: 20101110
  Receipt Date: 20101025
  Transmission Date: 20110411
  Serious: Yes (Hospitalization)
  Sender: FDA-Public Use
  Company Number: US-ACCORD-006560

PATIENT
  Age: 63 Year
  Sex: Male

DRUGS (10)
  1. SIMVASTATIN [Suspect]
     Indication: PRODUCT USED FOR UNKNOWN INDICATION
     Dosage: 80.00-MG-1.0DAYS / ORAL
     Route: 048
  2. RANOLAZINE [Suspect]
     Dosage: 500.00-MG-1.0DAY / ORAL
     Route: 048
  3. FUROSEMIDE [Concomitant]
  4. CLOPIDOGREL [Concomitant]
  5. HYDRALAZINE HCL [Concomitant]
  6. METOPROLOL SUCCINATE [Concomitant]
  7. ISOSORBIDE MONONITRATE [Concomitant]
  8. OMEPRAZOLE [Concomitant]
  9. AMLODIPINE [Concomitant]
  10. NITROGLYCERIN [Concomitant]

REACTIONS (3)
  - BLOOD CREATININE INCREASED [None]
  - DRUG INTERACTION [None]
  - RHABDOMYOLYSIS [None]
